FAERS Safety Report 6196099-5 (Version None)
Quarter: 2009Q2

REPORT INFORMATION
  Report Type: 
  Country: None (occurrence: None)
  Receive Date: 20090520
  Receipt Date: 20080416
  Transmission Date: 20091009
  Serious: Yes (Hospitalization)
  Sender: FDA-Public Use
  Company Number: US-ASTRAZENECA-2007UW24325

PATIENT
  Age: 6243 Day
  Sex: Female
  Weight: 64.4 kg

DRUGS (17)
  1. SEROQUEL [Suspect]
     Indication: SLEEP DISORDER
     Route: 048
     Dates: start: 19990101, end: 20061201
  2. SEROQUEL [Suspect]
     Indication: SCHIZOPHRENIA
     Route: 048
     Dates: start: 19990101, end: 20061201
  3. SEROQUEL [Suspect]
     Indication: DEPRESSION
     Route: 048
     Dates: start: 19990101, end: 20061201
  4. SEROQUEL [Suspect]
     Dosage: 100-400 MG
     Route: 048
     Dates: start: 20050401
  5. SEROQUEL [Suspect]
     Dosage: 100-400 MG
     Route: 048
     Dates: start: 20050401
  6. SEROQUEL [Suspect]
     Dosage: 100-400 MG
     Route: 048
     Dates: start: 20050401
  7. ABILIFY [Concomitant]
     Route: 048
  8. PROVERA [Concomitant]
     Route: 048
  9. DOXYCYCLINE [Concomitant]
     Route: 048
  10. ORTHO TRI-CYCLEN [Concomitant]
     Route: 048
  11. PHENERGAN [Concomitant]
     Route: 048
  12. METOCLOPRAMIDE [Concomitant]
     Route: 048
  13. PREDNISOLONE [Concomitant]
     Route: 048
  14. LEVSIN [Concomitant]
     Route: 048
  15. ZOVIRAX [Concomitant]
     Route: 048
  16. FAMOTIDINE [Concomitant]
     Route: 048
  17. PENICILLIN VK [Concomitant]
     Route: 048

REACTIONS (19)
  - AGGRESSION [None]
  - AGITATION [None]
  - AMENORRHOEA [None]
  - CONFUSIONAL STATE [None]
  - DIABETES MELLITUS [None]
  - GASTROOESOPHAGEAL REFLUX DISEASE [None]
  - GOITRE [None]
  - HALLUCINATION [None]
  - HOMICIDAL IDEATION [None]
  - INSOMNIA [None]
  - MAJOR DEPRESSION [None]
  - MANIA [None]
  - MENORRHAGIA [None]
  - PANIC ATTACK [None]
  - PARANOIA [None]
  - SINUSITIS [None]
  - SUICIDAL IDEATION [None]
  - TONSILLITIS [None]
  - TOOTHACHE [None]
